FAERS Safety Report 25478758 (Version 1)
Quarter: 2025Q2

REPORT INFORMATION
  Report Type: Spontaneous
  Country: DE (occurrence: DE)
  Receive Date: 20250625
  Receipt Date: 20250625
  Transmission Date: 20250717
  Serious: Yes (Life-Threatening, Hospitalization, Other)
  Sender: AUROBINDO
  Company Number: DE-002147023-NVSC2020DE307788

PATIENT
  Age: 66 Year
  Sex: Male
  Weight: 76.8 kg

DRUGS (53)
  1. OXALIPLATIN [Suspect]
     Active Substance: OXALIPLATIN
     Indication: B-cell lymphoma
     Route: 042
     Dates: start: 20201113
  2. OXALIPLATIN [Suspect]
     Active Substance: OXALIPLATIN
     Route: 065
  3. CYTARABINE [Suspect]
     Active Substance: CYTARABINE
     Indication: B-cell lymphoma
     Dosage: 15440 MILLIGRAM, ONCE A DAY [7720 MG, BID]
     Route: 042
     Dates: start: 20201114
  4. CYTARABINE [Suspect]
     Active Substance: CYTARABINE
     Route: 065
  5. RITUXIMAB [Suspect]
     Active Substance: RITUXIMAB
     Indication: B-cell lymphoma
     Route: 042
     Dates: start: 20201111
  6. DECADRON (DEXAMETHASONE SODIUM PHOSPHATE) [Suspect]
     Active Substance: DEXAMETHASONE SODIUM PHOSPHATE
     Indication: Plasma cell myeloma refractory
     Dosage: 120 MILLIGRAM, ONCE A DAY [120 MG, QD]
     Route: 048
     Dates: start: 20201113
  7. DECADRON (DEXAMETHASONE SODIUM PHOSPHATE) [Suspect]
     Active Substance: DEXAMETHASONE SODIUM PHOSPHATE
     Indication: B-cell lymphoma
     Route: 065
  8. TORSEMIDE [Concomitant]
     Active Substance: TORSEMIDE
     Indication: Hypertension
     Route: 065
     Dates: start: 20201030
  9. PANTOPRAZOLE SODIUM [Concomitant]
     Active Substance: PANTOPRAZOLE SODIUM
     Indication: Gastrointestinal disorder prophylaxis
     Route: 065
     Dates: start: 20201028, end: 20201111
  10. PANTOPRAZOLE SODIUM [Concomitant]
     Active Substance: PANTOPRAZOLE SODIUM
     Route: 065
     Dates: start: 20201113
  11. RAMIPRIL [Concomitant]
     Active Substance: RAMIPRIL
     Indication: Hypertension
     Route: 065
     Dates: start: 20201031
  12. PIRITRAMIDE [Concomitant]
     Active Substance: PIRITRAMIDE
     Indication: Prophylaxis
     Route: 065
     Dates: start: 20201105
  13. Jonosteril [Concomitant]
     Indication: Prophylaxis
     Route: 065
     Dates: start: 20201105, end: 20201105
  14. Jonosteril [Concomitant]
     Route: 065
     Dates: start: 20201110, end: 20201111
  15. Jonosteril [Concomitant]
     Route: 065
     Dates: start: 20201112, end: 20201112
  16. Jonosteril [Concomitant]
     Route: 065
     Dates: start: 20201114, end: 20201114
  17. Jonosteril [Concomitant]
     Route: 065
     Dates: start: 20201115
  18. NEULASTA [Concomitant]
     Active Substance: PEGFILGRASTIM
     Indication: Prophylaxis
     Route: 065
     Dates: start: 20201116
  19. Paracodin [Concomitant]
     Indication: Cough
     Route: 065
     Dates: start: 20201110
  20. Novalgin [Concomitant]
     Indication: Abdominal pain
     Route: 065
     Dates: start: 20201111
  21. BUTYLSCOPOLAMINE BROMIDE [Concomitant]
     Active Substance: BUTYLSCOPOLAMINE BROMIDE
     Indication: Abdominal pain
     Route: 065
     Dates: start: 20201111
  22. ACETAMINOPHEN [Concomitant]
     Active Substance: ACETAMINOPHEN
     Indication: Premedication
     Route: 065
     Dates: start: 20201111
  23. FUROSEMIDE [Concomitant]
     Active Substance: FUROSEMIDE
     Indication: Dyspnoea
     Route: 065
     Dates: start: 20201110, end: 20201110
  24. FUROSEMIDE [Concomitant]
     Active Substance: FUROSEMIDE
     Indication: Anuria
     Route: 065
     Dates: start: 20201112, end: 20201112
  25. FUROSEMIDE [Concomitant]
     Active Substance: FUROSEMIDE
     Route: 065
     Dates: start: 20201114, end: 20201115
  26. FUROSEMIDE [Concomitant]
     Active Substance: FUROSEMIDE
     Route: 065
     Dates: start: 20201116
  27. EMEND [Concomitant]
     Active Substance: APREPITANT
     Indication: Prophylaxis of nausea and vomiting
     Route: 065
     Dates: start: 20201111, end: 20201111
  28. EMEND [Concomitant]
     Active Substance: APREPITANT
     Route: 065
     Dates: start: 20201113, end: 20201113
  29. EMEND [Concomitant]
     Active Substance: APREPITANT
     Route: 065
     Dates: start: 20201114
  30. ONDANSETRON [Concomitant]
     Active Substance: ONDANSETRON
     Indication: Prophylaxis
     Route: 065
     Dates: start: 20201113, end: 20201114
  31. ONDANSETRON [Concomitant]
     Active Substance: ONDANSETRON
     Indication: Prophylaxis of nausea and vomiting
     Route: 065
     Dates: start: 20201115, end: 20201115
  32. ONDANSETRON [Concomitant]
     Active Substance: ONDANSETRON
     Route: 065
     Dates: start: 20201116
  33. DEXAMETHASONE SODIUM PHOSPHATE [Concomitant]
     Active Substance: DEXAMETHASONE SODIUM PHOSPHATE
     Indication: Eye disorder prophylaxis
     Route: 065
     Dates: start: 20201114
  34. COTRIM [Concomitant]
     Active Substance: SULFAMETHOXAZOLE\TRIMETHOPRIM
     Indication: Infection prophylaxis
     Route: 065
     Dates: start: 20201116
  35. ALLOPURINOL [Concomitant]
     Active Substance: ALLOPURINOL
     Indication: Prophylaxis
     Route: 065
     Dates: start: 20201113
  36. RASBURICASE [Concomitant]
     Active Substance: RASBURICASE
     Indication: Prophylaxis
     Route: 065
     Dates: start: 20201114
  37. METOPROLOL [Concomitant]
     Active Substance: METOPROLOL
     Indication: Tachyarrhythmia
     Route: 065
     Dates: start: 20201116
  38. DIMETHINDENE [Concomitant]
     Active Substance: DIMETHINDENE
     Indication: Premedication
     Route: 065
     Dates: start: 20201111, end: 20201111
  39. DIMETHINDENE [Concomitant]
     Active Substance: DIMETHINDENE
     Indication: Dyspnoea
     Route: 065
     Dates: start: 20201116
  40. PREDNISOLONE SODIUM SUCCINATE [Concomitant]
     Active Substance: PREDNISOLONE SODIUM SUCCINATE
     Indication: Premedication
     Route: 065
     Dates: start: 20201110, end: 20201111
  41. PREDNISOLONE SODIUM SUCCINATE [Concomitant]
     Active Substance: PREDNISOLONE SODIUM SUCCINATE
     Indication: Dyspnoea
     Route: 065
     Dates: start: 20201111, end: 20201111
  42. PREDNISOLONE SODIUM SUCCINATE [Concomitant]
     Active Substance: PREDNISOLONE SODIUM SUCCINATE
     Route: 065
     Dates: start: 20201116
  43. Cimetidin [Concomitant]
     Indication: Premedication
     Route: 065
     Dates: start: 20201111
  44. MANNITOL [Concomitant]
     Active Substance: MANNITOL
     Indication: Premedication
     Route: 065
     Dates: start: 20201113
  45. DIGOXIN [Concomitant]
     Active Substance: DIGOXIN
     Indication: Tachyarrhythmia
     Route: 065
     Dates: start: 20201116
  46. TRAMADOL [Concomitant]
     Active Substance: TRAMADOL
     Indication: Pain
     Route: 065
     Dates: start: 20201105, end: 20201105
  47. TRAMADOL [Concomitant]
     Active Substance: TRAMADOL
     Route: 065
     Dates: start: 20201106
  48. CALCIUM [Concomitant]
     Active Substance: CALCIUM
     Indication: Hypocalcaemia
     Route: 065
     Dates: start: 20201208
  49. PIPERACILLIN SODIUM\TAZOBACTAM SODIUM [Concomitant]
     Active Substance: PIPERACILLIN SODIUM\TAZOBACTAM SODIUM
     Indication: Prophylaxis
     Route: 065
     Dates: start: 20201112
  50. POTASSIUM CHLORIDE [Concomitant]
     Active Substance: POTASSIUM CHLORIDE
     Indication: Hypokalaemia
     Route: 065
     Dates: start: 20201028, end: 20201106
  51. POTASSIUM CHLORIDE [Concomitant]
     Active Substance: POTASSIUM CHLORIDE
     Route: 065
     Dates: start: 20201107
  52. OMEPRAZOLE [Concomitant]
     Active Substance: OMEPRAZOLE
     Indication: Prophylaxis
     Route: 065
  53. Calciumgluconat [Concomitant]
     Indication: Hypocalcaemia
     Route: 065
     Dates: start: 20201208

REACTIONS (2)
  - Tumour lysis syndrome [Recovered/Resolved]
  - Renal failure [Recovered/Resolved]

NARRATIVE: CASE EVENT DATE: 20201111
